FAERS Safety Report 20541274 (Version 1)
Quarter: 2022Q1

REPORT INFORMATION
  Report Type: Spontaneous
  Country: US (occurrence: None)
  Receive Date: 20220302
  Receipt Date: 20220302
  Transmission Date: 20220423
  Serious: No
  Sender: FDA-Public Use
  Company Number: None

PATIENT
  Sex: Female
  Weight: 57.15 kg

DRUGS (13)
  1. JARDIANCE [Suspect]
     Active Substance: EMPAGLIFLOZIN
     Indication: Diabetes mellitus
     Dosage: FREQUENCY : DAILY;?
     Route: 048
     Dates: start: 20170119, end: 20210819
  2. AMLODIPINE [Concomitant]
     Active Substance: AMLODIPINE BESYLATE
  3. FAMOTIDINE [Concomitant]
     Active Substance: FAMOTIDINE
  4. ASPIRIN [Concomitant]
     Active Substance: ASPIRIN
  5. ESTRADIOL [Concomitant]
     Active Substance: ESTRADIOL
  6. PANTOPRAZOLE [Concomitant]
     Active Substance: PANTOPRAZOLE
  7. CLOTRIMAZOLE [Concomitant]
     Active Substance: CLOTRIMAZOLE
  8. LOSARTAN [Concomitant]
     Active Substance: LOSARTAN
  9. NYSTATIN [Concomitant]
     Active Substance: NYSTATIN
  10. CALCIUM [Concomitant]
     Active Substance: CALCIUM
  11. Magnesium+Zinc+Vit D. [Concomitant]
  12. Elderberries [Concomitant]
  13. BIOTIN [Concomitant]
     Active Substance: BIOTIN

REACTIONS (3)
  - Genital infection fungal [None]
  - Anal fungal infection [None]
  - Fungal skin infection [None]

NARRATIVE: CASE EVENT DATE: 20190101
